FAERS Safety Report 5565040-8 (Version None)
Quarter: 2007Q4

REPORT INFORMATION
  Report Type: 
  Country: None (occurrence: None)
  Receive Date: 20071212
  Receipt Date: 20071204
  Transmission Date: 20080405
  Serious: Yes (Hospitalization)
  Sender: FDA-Public Use
  Company Number: 163-21880-07101654

PATIENT
  Age: 93 Year
  Sex: Female
  Weight: 71.2147 kg

DRUGS (2)
  1. REVLIMID [Suspect]
     Indication: MYELODYSPLASTIC SYNDROME
     Dosage: 5 MG, EVERY OTHER DAY, ORAL
     Route: 048
     Dates: start: 20070901
  2. LASIX [Concomitant]

REACTIONS (4)
  - CARDIAC DISORDER [None]
  - FEELING ABNORMAL [None]
  - FLUID RETENTION [None]
  - NAUSEA [None]
